FAERS Safety Report 7803560-3 (Version None)
Quarter: 2011Q4

REPORT INFORMATION
  Report Type: 
  Country: None (occurrence: None)
  Receive Date: 20111009
  Receipt Date: 20111001
  Transmission Date: 20120403
  Serious: No
  Sender: FDA-Public Use
  Company Number: US-B.I. PHARMACEUTICALS,INC./RIDGEFIELD-2011-BP-23283BP

PATIENT
  Age: 76 Year
  Sex: Female

DRUGS (6)
  1. PRADAXA [Suspect]
     Indication: ATRIAL FIBRILLATION
     Dosage: 300 MG
     Route: 048
     Dates: start: 20110727
  2. LISINOPRIL [Concomitant]
  3. BISOPROLOL - FUM [Concomitant]
     Indication: SLEEP DISORDER
     Route: 048
  4. DIGOXIN [Concomitant]
     Route: 048
  5. POTASSIUM CHLORIDE [Concomitant]
     Route: 048
  6. FUROSEMIDE [Concomitant]

REACTIONS (3)
  - RASH [None]
  - AMNESIA [None]
  - NAUSEA [None]
